FAERS Safety Report 8922015 (Version 1)
Quarter: 2012Q4

REPORT INFORMATION
  Report Type: Spontaneous
  Country: IT (occurrence: None)
  Receive Date: 20121109
  Receipt Date: 20121109
  Transmission Date: 20130627
  Serious: Yes (Hospitalization)
  Sender: FDA-Public Use
  Company Number: 2012S1000165

PATIENT
  Age: 73 Year
  Sex: Male

DRUGS (13)
  1. CUBICIN [Suspect]
     Indication: ENDOCARDITIS
     Route: 042
     Dates: start: 20110828, end: 20110915
  2. GENTAMICIN [Suspect]
     Indication: ENDOCARDITIS
     Dates: start: 20110828, end: 20110919
  3. TARGOSID [Suspect]
     Indication: HEMODIALYSIS
     Dates: start: 20110920, end: 20111013
  4. NEXIUM [Concomitant]
  5. SPIRIVA [Concomitant]
  6. OMNICEF [Concomitant]
  7. SIVASTIN [Concomitant]
  8. CORDARONE /00133102/ [Concomitant]
  9. ROCALTROL [Concomitant]
  10. ARANESP [Concomitant]
  11. BISOPROLOL FUMARATE W/ HYDROCHLOROTHIAZIDE [Concomitant]
  12. ADALAT CRONO [Concomitant]
  13. LASIX /00032601/ [Concomitant]

REACTIONS (1)
  - Clostridium difficile colitis [None]
